FAERS Safety Report 25793791 (Version 3)
Quarter: 2025Q4

REPORT INFORMATION
  Report Type: Spontaneous
  Country: US (occurrence: US)
  Receive Date: 20250912
  Receipt Date: 20251007
  Transmission Date: 20260118
  Serious: Yes (Death, Life-Threatening, Hospitalization, Other)
  Sender: ACCORD
  Company Number: US-Accord-504117

PATIENT
  Age: 6 Decade
  Sex: Male

DRUGS (11)
  1. ALLOPURINOL [Interacting]
     Active Substance: ALLOPURINOL
     Indication: Gout
  2. AMLODIPINE [Interacting]
     Active Substance: AMLODIPINE BESYLATE
     Indication: Product used for unknown indication
  3. BUPROPION HYDROCHLORIDE [Interacting]
     Active Substance: BUPROPION HYDROCHLORIDE
     Indication: Product used for unknown indication
  4. HYDROCHLOROTHIAZIDE [Interacting]
     Active Substance: HYDROCHLOROTHIAZIDE
     Indication: Product used for unknown indication
  5. METOPROLOL SUCCINATE [Interacting]
     Active Substance: METOPROLOL SUCCINATE
     Indication: Product used for unknown indication
  6. COLCHICINE [Interacting]
     Active Substance: COLCHICINE
     Indication: Gout
  7. ALBUTEROL [Concomitant]
     Active Substance: ALBUTEROL
     Dosage: AS NEEDED
  8. AZITHROMYCIN [Concomitant]
     Active Substance: AZITHROMYCIN
     Indication: Dyspnoea
  9. METFORMIN [Interacting]
     Active Substance: METFORMIN HYDROCHLORIDE
     Indication: Product used for unknown indication
  10. PREDNISONE [Concomitant]
     Active Substance: PREDNISONE
     Indication: Gout
  11. PREDNISONE [Concomitant]
     Active Substance: PREDNISONE
     Indication: Gout

REACTIONS (11)
  - Hepatic failure [Fatal]
  - Drug-induced liver injury [Fatal]
  - Respiratory distress [Fatal]
  - Multiple organ dysfunction syndrome [Fatal]
  - Drug interaction [Fatal]
  - Pancreatitis [Unknown]
  - Cholecystitis [Unknown]
  - Biliary dilatation [Unknown]
  - Metabolic acidosis [Unknown]
  - Renal failure [Unknown]
  - Ascites [Unknown]
